FAERS Safety Report 13994827 (Version 1)
Quarter: 2017Q3

REPORT INFORMATION
  Report Type: Spontaneous
  Country: DE (occurrence: DE)
  Receive Date: 20170921
  Receipt Date: 20170921
  Transmission Date: 20171128
  Serious: Yes (Congenital Anomaly)
  Sender: FDA-Public Use
  Company Number: DE-TORRENT-00007099

PATIENT
  Sex: Female
  Weight: 2 kg

DRUGS (2)
  1. FEMI BABY [Concomitant]
  2. CITALOPRAM [Suspect]
     Active Substance: CITALOPRAM HYDROBROMIDE

REACTIONS (2)
  - Foetal exposure during pregnancy [Unknown]
  - Craniosynostosis [Not Recovered/Not Resolved]
